FAERS Safety Report 8587444-1 (Version None)
Quarter: 2012Q3

REPORT INFORMATION
  Report Type: 
  Country: None (occurrence: None)
  Receive Date: 20120810
  Receipt Date: 20120125
  Transmission Date: 20120928
  Serious: No
  Sender: FDA-Public Use
  Company Number: US-ASTRAZENECA-2011SE60951

PATIENT
  Age: 69 Year
  Sex: Female

DRUGS (2)
  1. KLONOPIN [Concomitant]
     Indication: ANXIETY DISORDER
  2. ARIMIDEX [Suspect]
     Route: 048
     Dates: start: 20111001, end: 20111001

REACTIONS (11)
  - MULTIPLE ALLERGIES [None]
  - ADVERSE DRUG REACTION [None]
  - HYPOGLYCAEMIA [None]
  - HYPOTENSION [None]
  - BONE LOSS [None]
  - BLOOD GLUCOSE DECREASED [None]
  - TOOTH ABSCESS [None]
  - NERVOUSNESS [None]
  - ANXIETY [None]
  - FEELING ABNORMAL [None]
  - DISORIENTATION [None]
